FAERS Safety Report 17999968 (Version 1)
Quarter: 2020Q3

REPORT INFORMATION
  Report Type: Spontaneous
  Country: US (occurrence: US)
  Receive Date: 20200709
  Receipt Date: 20200709
  Transmission Date: 20201103
  Serious: No
  Sender: FDA-Public Use
  Company Number: None

PATIENT
  Age: 65 Year
  Sex: Female
  Weight: 46.8 kg

DRUGS (12)
  1. CITRUCEL [Concomitant]
     Active Substance: METHYLCELLULOSE (4000 MPA.S)
  2. VITAMIN D [Concomitant]
     Active Substance: VITAMIN D NOS
  3. INDAPAMIDE. [Concomitant]
     Active Substance: INDAPAMIDE
  4. SUPER B COMPLEX [Concomitant]
     Active Substance: CYANOCOBALAMIN\DEXPANTHENOL\NIACINAMIDE\PYRIDOXINE HYDROCHLORIDE\RIBOFLAVIN 5^-PHOSPHATE SODIUM\THIAMINE HYDROCHLORIDE\VITAMIN B COMPLEX
  5. ALIGN [Concomitant]
     Active Substance: BIFIDOBACTERIUM LONGUM SUBSP. INFANTIS
  6. FOSAMAX [Suspect]
     Active Substance: ALENDRONATE SODIUM
  7. PROLIA [Suspect]
     Active Substance: DENOSUMAB
     Indication: OSTEOPOROSIS
     Dosage: ?          OTHER FREQUENCY:INJECTION EVERY 6;OTHER ROUTE:INJECTION?
  8. KLOR?CON [Concomitant]
     Active Substance: POTASSIUM CHLORIDE
  9. CALCIUM [Concomitant]
     Active Substance: CALCIUM
  10. MULTIPLE VITAMINS [Concomitant]
     Active Substance: VITAMINS
  11. PROTONIX [Concomitant]
     Active Substance: PANTOPRAZOLE SODIUM
  12. FOSAMAX [Concomitant]
     Active Substance: ALENDRONATE SODIUM

REACTIONS (3)
  - Adverse drug reaction [None]
  - Myalgia [None]
  - Back pain [None]

NARRATIVE: CASE EVENT DATE: 20191101
